FAERS Safety Report 14199430 (Version 4)
Quarter: 2018Q3

REPORT INFORMATION
  Report Type: Spontaneous
  Country: US (occurrence: US)
  Receive Date: 20171117
  Receipt Date: 20180730
  Transmission Date: 20181010
  Serious: No
  Sender: FDA-Public Use
  Company Number: US-PFIZER INC-2017494686

PATIENT
  Age: 50 Year
  Sex: Female
  Weight: 59.86 kg

DRUGS (27)
  1. DOCETAXEL. [Suspect]
     Active Substance: DOCETAXEL
     Dosage: CYCLE 3, WAS 111 MG, EVERY 3 WEEKS
  2. DOCETAXEL. [Suspect]
     Active Substance: DOCETAXEL
     Dosage: CYCLE 2 WAS 112 MG, EVERY 3 WEEKS
  3. DOCETAXEL. [Suspect]
     Active Substance: DOCETAXEL
     Dosage: CYCLE 5, EVERY 3 WEEKS
  4. HERCEPTIN [Concomitant]
     Active Substance: TRASTUZUMAB
     Dosage: UNK
  5. KYTRIL [Concomitant]
     Active Substance: GRANISETRON HYDROCHLORIDE
     Dosage: UNK
  6. PROCHLORPERAZINE. [Concomitant]
     Active Substance: PROCHLORPERAZINE
     Dosage: UNK
  7. DOCETAXEL. [Suspect]
     Active Substance: DOCETAXEL
     Dosage: CYCLE 6 WAS 111 MG, EVERY 3 WEEKS
     Dates: end: 20120829
  8. NEULASTA [Concomitant]
     Active Substance: PEGFILGRASTIM
     Dosage: UNK
  9. CYMBALTA [Concomitant]
     Active Substance: DULOXETINE HYDROCHLORIDE
     Dosage: UNK
  10. DOCUSATE SODIUM. [Concomitant]
     Active Substance: DOCUSATE SODIUM
     Dosage: UNK
  11. ONDANSETRON [Concomitant]
     Active Substance: ONDANSETRON
     Dosage: UNK
  12. PARAPLATIN [Concomitant]
     Active Substance: CARBOPLATIN
     Dosage: UNK
  13. TOPIRAMATE. [Concomitant]
     Active Substance: TOPIRAMATE
     Dosage: UNK
  14. DOCETAXEL. [Suspect]
     Active Substance: DOCETAXEL
     Indication: BREAST CANCER
     Dosage: CYCLE 1 WAS 113 MG, EVERY 3 WEEKS
     Dates: start: 20120509
  15. DOCETAXEL. [Suspect]
     Active Substance: DOCETAXEL
     Indication: BREAST CANCER
     Dosage: CYCLE 1 WAS 113 MG, EVERY 3 WEEKS
     Dates: start: 20120509
  16. DOCETAXEL. [Suspect]
     Active Substance: DOCETAXEL
     Dosage: CYCLE 2 WAS 112 MG, EVERY 3 WEEKS
  17. DOCETAXEL. [Suspect]
     Active Substance: DOCETAXEL
     Dosage: CYCLE 4 WAS 111 MG, EVERY 3 WEEKS
  18. COLACE [Concomitant]
     Active Substance: DOCUSATE SODIUM
     Dosage: UNK
  19. NORCO [Concomitant]
     Active Substance: ACETAMINOPHEN\HYDROCODONE BITARTRATE
     Dosage: UNK
  20. DOCETAXEL. [Suspect]
     Active Substance: DOCETAXEL
     Dosage: CYCLE 3 WAS 111MG, EVERY 3 WEEKS
  21. DOCETAXEL. [Suspect]
     Active Substance: DOCETAXEL
     Dosage: CYCLE 4 WAS 111MG, EVERY 3 WEEKS
  22. DOCETAXEL. [Suspect]
     Active Substance: DOCETAXEL
     Dosage: CYCLE 6 WAS 111MG, EVERY 3 WEEKS
     Dates: end: 20120829
  23. DOCETAXEL. [Suspect]
     Active Substance: DOCETAXEL
     Dosage: CYCLE 5 WAS 111 MG, EVERY 3 WEEKS
  24. ARIMIDEX [Concomitant]
     Active Substance: ANASTROZOLE
     Dosage: UNK
     Dates: start: 20120524, end: 201706
  25. BENADRYL [Concomitant]
     Active Substance: DIPHENHYDRAMINE HYDROCHLORIDE
     Dosage: UNK
  26. TAXOTERE [Concomitant]
     Active Substance: DOCETAXEL
     Dosage: UNK
  27. DECADRON [Concomitant]
     Active Substance: DEXAMETHASONE
     Dosage: UNK

REACTIONS (5)
  - Hair texture abnormal [Not Recovered/Not Resolved]
  - Alopecia [Not Recovered/Not Resolved]
  - Hair disorder [Not Recovered/Not Resolved]
  - Madarosis [Not Recovered/Not Resolved]
  - Hair colour changes [Not Recovered/Not Resolved]

NARRATIVE: CASE EVENT DATE: 20130301
